FAERS Safety Report 16070997 (Version 1)
Quarter: 2019Q1

REPORT INFORMATION
  Report Type: Spontaneous
  Country: FR (occurrence: FR)
  Receive Date: 20190314
  Receipt Date: 20190314
  Transmission Date: 20190418
  Serious: Yes (Death)
  Sender: FDA-Public Use
  Company Number: FR-ACCORD-112491

PATIENT
  Age: 88 Year
  Sex: Female
  Weight: 71.5 kg

DRUGS (10)
  1. CERNEVIT [Concomitant]
     Active Substance: VITAMINS
     Route: 041
  2. PREVISCAN (FLUINDIONE) [Suspect]
     Active Substance: FLUINDIONE
     Indication: ANTICOAGULANT THERAPY
     Route: 048
     Dates: end: 20180226
  3. ESOMEPRAZOLE. [Concomitant]
     Active Substance: ESOMEPRAZOLE MAGNESIUM
     Route: 048
  4. ALANINE/ARGININE/ASPARTIC ACID/GLUTAMIC ACID/GLYCINE/HISTIDINE/ISOLEUCINE/LEUCINE/LYSINE/METHIONINE/ [Concomitant]
     Route: 041
  5. AZARGA [Concomitant]
     Active Substance: BRINZOLAMIDE\TIMOLOL MALEATE
     Route: 047
  6. AMIODARONE [Concomitant]
     Active Substance: AMIODARONE
     Route: 048
  7. IRBESARTAN. [Suspect]
     Active Substance: IRBESARTAN
     Indication: PRODUCT USED FOR UNKNOWN INDICATION
     Route: 048
  8. ORGARAN [Suspect]
     Active Substance: DANAPAROID SODIUM
     Indication: ANTICOAGULANT THERAPY
     Dates: start: 20180206, end: 20180226
  9. METFORMIN [Concomitant]
     Active Substance: METFORMIN HYDROCHLORIDE
     Route: 048
  10. HYDROCHLOROTHIAZIDE. [Suspect]
     Active Substance: HYDROCHLOROTHIAZIDE
     Indication: PRODUCT USED FOR UNKNOWN INDICATION
     Route: 048

REACTIONS (4)
  - International normalised ratio increased [Fatal]
  - Haematoma [Fatal]
  - Acute kidney injury [Fatal]
  - Shock haemorrhagic [Fatal]

NARRATIVE: CASE EVENT DATE: 20180218
